FAERS Safety Report 4416449-7 (Version None)
Quarter: 2004Q3

REPORT INFORMATION
  Report Type: 
  Country: None (occurrence: None)
  Receive Date: 20040802
  Receipt Date: 20040719
  Transmission Date: 20050211
  Serious: Yes (Hospitalization)
  Sender: FDA-Public Use
  Company Number: FR-JNJFOC-20040705155

PATIENT
  Age: 63 Year
  Sex: Male

DRUGS (9)
  1. IXPRIM (TRAMADOL/APAP) TABLETS [Suspect]
     Indication: BACK PAIN
     Dosage: 4 IN 1 DAY, ORAL
     Route: 048
     Dates: start: 20040330, end: 20040427
  2. VOLTARENE (DICLOFENAC SODIUM) TABLETS [Suspect]
     Indication: BACK PAIN
     Dosage: 75 MG, 1 IN 1 D, ORAL
     Route: 048
     Dates: start: 20040405, end: 20040427
  3. ECAZIDE (CAPOZIDE) [Concomitant]
  4. AVLOCARDIL (PROPRANOLOL) [Concomitant]
  5. LORAZEPAM [Concomitant]
  6. EFFEXOR [Concomitant]
  7. INIPOMP (PANTOPRAZOLE) [Concomitant]
  8. NOCTRAN (NOCTRAN 10) [Concomitant]
  9. CLARYTINE (LORATADINE) [Concomitant]

REACTIONS (5)
  - CONFUSIONAL STATE [None]
  - DRUG INTERACTION [None]
  - INFECTION [None]
  - RESPIRATORY ALKALOSIS [None]
  - TOXIC EPIDERMAL NECROLYSIS [None]
